FAERS Safety Report 15583456 (Version 2)
Quarter: 2018Q4

REPORT INFORMATION
  Report Type: Spontaneous
  Country: US (occurrence: US)
  Receive Date: 20181104
  Receipt Date: 20181114
  Transmission Date: 20190205
  Serious: Yes (Death, Life-Threatening, Hospitalization, Other)
  Sender: FDA-Public Use
  Company Number: US-ZYDUS-029416

PATIENT
  Age: 56 Year
  Sex: Male

DRUGS (4)
  1. PHENOBARBITAL. [Suspect]
     Active Substance: PHENOBARBITAL
     Indication: SEIZURE
     Route: 065
  2. DILTIAZEM. [Concomitant]
     Active Substance: DILTIAZEM
     Indication: ATRIAL FLUTTER
     Route: 041
  3. PHENYTOIN. [Suspect]
     Active Substance: PHENYTOIN
     Indication: SEIZURE
     Route: 065
  4. AMIODARONE [Suspect]
     Active Substance: AMIODARONE
     Indication: ATRIAL FLUTTER
     Route: 041

REACTIONS (7)
  - Acute hepatic failure [Unknown]
  - Drug-induced liver injury [Fatal]
  - Hepatomegaly [Unknown]
  - Cardiac arrest [Fatal]
  - Coagulopathy [Unknown]
  - Ischaemic hepatitis [Unknown]
  - Multiple organ dysfunction syndrome [Fatal]
